FAERS Safety Report 23021363 (Version 1)
Quarter: 2023Q4

REPORT INFORMATION
  Report Type: Spontaneous
  Country: CN (occurrence: CN)
  Receive Date: 20231003
  Receipt Date: 20231003
  Transmission Date: 20240110
  Serious: Yes (Hospitalization)
  Sender: FDA-Public Use
  Company Number: CN-PFIZER INC-PV202300159747

PATIENT
  Age: 10 Year
  Sex: Male
  Weight: 47.5 kg

DRUGS (4)
  1. CYTARABINE [Suspect]
     Active Substance: CYTARABINE
     Indication: Acute lymphocytic leukaemia
     Dosage: 36 MG, 1X/DAY
     Route: 037
     Dates: start: 20221014, end: 20221014
  2. METHOTREXATE SODIUM [Suspect]
     Active Substance: METHOTREXATE SODIUM
     Indication: Acute lymphocytic leukaemia
     Dosage: 2700 MG, 1X/DAY
     Route: 041
     Dates: start: 20221014, end: 20221014
  3. METHOTREXATE [Suspect]
     Active Substance: METHOTREXATE
     Indication: Acute lymphocytic leukaemia
     Dosage: 12 MG, 1X/DAY
     Route: 037
     Dates: start: 20221014, end: 20221014
  4. VINCRISTINE SULFATE [Suspect]
     Active Substance: VINCRISTINE SULFATE
     Indication: Acute lymphocytic leukaemia
     Dosage: 1.8 MG, 1X/DAY
     Route: 041
     Dates: start: 20221014, end: 20221014

REACTIONS (6)
  - Drug-induced liver injury [Unknown]
  - Myelosuppression [Unknown]
  - Serum ferritin abnormal [Unknown]
  - Urticaria [Unknown]
  - Rash [Unknown]
  - Overdose [Unknown]

NARRATIVE: CASE EVENT DATE: 20221014
